FAERS Safety Report 6602306-4 (Version None)
Quarter: 2010Q1

REPORT INFORMATION
  Report Type: 
  Country: None (occurrence: None)
  Receive Date: 20100225
  Receipt Date: 20100223
  Transmission Date: 20100710
  Serious: Yes (Congenital Anomaly)
  Sender: FDA-Public Use
  Company Number: A0680455A

PATIENT
  Sex: Male

DRUGS (8)
  1. PAXIL [Suspect]
     Indication: MAJOR DEPRESSION
     Dosage: 20MG PER DAY
     Dates: start: 19980101
  2. VITAMIN TAB [Concomitant]
  3. HALDOL [Concomitant]
     Dates: start: 19860101, end: 20010101
  4. HUMULIN R [Concomitant]
     Dates: start: 20010401, end: 20010601
  5. INSULIN [Concomitant]
     Dates: start: 20010401, end: 20010601
  6. HALOPERIDOL [Concomitant]
     Dates: start: 19860101, end: 20020101
  7. ALLEGRA [Concomitant]
     Dates: start: 20000707, end: 20030101
  8. LORATADINE [Concomitant]
     Dates: start: 20000101, end: 20050101

REACTIONS (7)
  - CONGENITAL AORTIC ATRESIA [None]
  - DRUG EXPOSURE DURING PREGNANCY [None]
  - HEART DISEASE CONGENITAL [None]
  - HYPOPLASTIC LEFT HEART SYNDROME [None]
  - LUNG DISORDER [None]
  - TRANSPOSITION OF THE GREAT VESSELS [None]
  - WOLFF-PARKINSON-WHITE SYNDROME [None]
